FAERS Safety Report 25285676 (Version 1)
Quarter: 2025Q2

REPORT INFORMATION
  Report Type: Spontaneous
  Country: PL (occurrence: PL)
  Receive Date: 20250509
  Receipt Date: 20250509
  Transmission Date: 20250717
  Serious: Yes (Hospitalization, Other)
  Sender: JOHNSON AND JOHNSON
  Company Number: PL-JNJFOC-20250504758

PATIENT

DRUGS (13)
  1. TECLISTAMAB [Suspect]
     Active Substance: TECLISTAMAB
     Indication: Plasma cell myeloma
     Dates: start: 20250122
  2. TECLISTAMAB [Suspect]
     Active Substance: TECLISTAMAB
     Dates: start: 20250124
  3. TECLISTAMAB [Suspect]
     Active Substance: TECLISTAMAB
     Dates: start: 20250129
  4. TECLISTAMAB [Suspect]
     Active Substance: TECLISTAMAB
     Dates: start: 20250205
  5. TECLISTAMAB [Suspect]
     Active Substance: TECLISTAMAB
     Dates: start: 20250212
  6. TECLISTAMAB [Suspect]
     Active Substance: TECLISTAMAB
     Dates: start: 20250219
  7. TECLISTAMAB [Suspect]
     Active Substance: TECLISTAMAB
     Dates: start: 20250317
  8. TECLISTAMAB [Suspect]
     Active Substance: TECLISTAMAB
     Dates: start: 20250324
  9. TECLISTAMAB [Suspect]
     Active Substance: TECLISTAMAB
     Dates: start: 20250331
  10. TECLISTAMAB [Suspect]
     Active Substance: TECLISTAMAB
     Dates: start: 20250407
  11. TECLISTAMAB [Suspect]
     Active Substance: TECLISTAMAB
     Dates: start: 20250417
  12. TECLISTAMAB [Suspect]
     Active Substance: TECLISTAMAB
     Dates: start: 20250423
  13. LINEZOLID [Concomitant]
     Active Substance: LINEZOLID
     Indication: Product used for unknown indication

REACTIONS (6)
  - Cytokine release syndrome [Unknown]
  - Diabetic ketoacidosis [Unknown]
  - Erysipelas [Unknown]
  - Thrombocytopenia [Unknown]
  - Gastroenteritis rotavirus [Unknown]
  - Supraventricular tachycardia [Unknown]

NARRATIVE: CASE EVENT DATE: 20250124
